FAERS Safety Report 16109742 (Version 1)
Quarter: 2019Q1

REPORT INFORMATION
  Report Type: Spontaneous
  Country: US (occurrence: US)
  Receive Date: 20190325
  Receipt Date: 20190325
  Transmission Date: 20190418
  Serious: No
  Sender: FDA-Public Use
  Company Number: US-ELI_LILLY_AND_COMPANY-US201903002428

PATIENT
  Sex: Female

DRUGS (3)
  1. FORTEO [Suspect]
     Active Substance: TERIPARATIDE
     Indication: OSTEOPOROSIS
     Dosage: UNK UNK, UNKNOWN
     Route: 065
  2. FOSTEUM [Concomitant]
     Active Substance: CHOLECALCIFEROL\GENISTEIN\ZINC GLYCINATE
     Indication: BONE DISORDER
  3. COLLAGEN [Concomitant]
     Active Substance: COLLAGEN
     Indication: BONE DISORDER

REACTIONS (2)
  - Oral pain [Unknown]
  - Dry mouth [Unknown]
